FAERS Safety Report 10711928 (Version 1)
Quarter: 2015Q1

REPORT INFORMATION
  Report Type: Spontaneous
  Country: US (occurrence: US)
  Receive Date: 20150114
  Receipt Date: 20150114
  Transmission Date: 20150721
  Serious: No
  Sender: FDA-Public Use
  Company Number: US-GLAXOSMITHKLINE-A1075432A

PATIENT
  Age: 14 Year
  Sex: Female

DRUGS (1)
  1. ABREVA [Suspect]
     Active Substance: DOCOSANOL

REACTIONS (5)
  - Application site pain [Recovered/Resolved]
  - Lip swelling [Not Recovered/Not Resolved]
  - Product quality issue [Unknown]
  - Application site exfoliation [Recovered/Resolved]
  - Application site irritation [Recovered/Resolved]
